FAERS Safety Report 9037595 (Version 1)
Quarter: 2013Q1

REPORT INFORMATION
  Report Type: Spontaneous
  Country: CZ (occurrence: CZ)
  Receive Date: 20130129
  Receipt Date: 20130129
  Transmission Date: 20140127
  Serious: Yes (Hospitalization, Other)
  Sender: FDA-Public Use
  Company Number: CZ-JNJFOC-20121113918

PATIENT
  Age: 41 Year
  Sex: Female
  Weight: 60 kg

DRUGS (4)
  1. REMICADE [Suspect]
     Indication: PSORIASIS
     Route: 042
     Dates: start: 201202, end: 20120903
  2. IBUPROFEN [Concomitant]
     Route: 065
     Dates: start: 20121014, end: 20121016
  3. DICLOFENACUM NATRICUM [Concomitant]
     Route: 030
     Dates: start: 20121017
  4. METAMIZOLUM [Concomitant]
     Route: 030
     Dates: start: 20121017

REACTIONS (3)
  - Optic neuritis [Recovering/Resolving]
  - Psoriasis [Unknown]
  - Arthritis [Not Recovered/Not Resolved]
